FAERS Safety Report 6234576-9 (Version None)
Quarter: 2009Q2

REPORT INFORMATION
  Report Type: 
  Country: None (occurrence: None)
  Receive Date: 20090615
  Receipt Date: 20090603
  Transmission Date: 20091009
  Serious: Yes (Other)
  Sender: FDA-Public Use
  Company Number: 2009-01857

PATIENT
  Age: 48 Year
  Sex: Female
  Weight: 70 kg

DRUGS (3)
  1. VELCADE [Suspect]
     Indication: MULTIPLE MYELOMA
     Dosage: 1.7 MG, INTRAVENOUS
     Route: 042
     Dates: start: 20090324, end: 20090421
  2. FLUDARABINE PHOSPHATE [Suspect]
     Indication: MULTIPLE MYELOMA
     Dosage: 50 MG, INTRAVENOUS
     Route: 042
     Dates: start: 20090416, end: 20090418
  3. ALKERAN [Suspect]
     Indication: MULTIPLE MYELOMA
     Dosage: 106 MG, INTRAVENOUS
     Route: 042
     Dates: start: 20090419, end: 20090420

REACTIONS (5)
  - FEBRILE NEUTROPENIA [None]
  - LOSS OF CONSCIOUSNESS [None]
  - SHOCK [None]
  - STEM CELL TRANSPLANT [None]
  - TOXIC ENCEPHALOPATHY [None]
